FAERS Safety Report 7198627-X (Version None)
Quarter: 2010Q4

REPORT INFORMATION
  Report Type: 
  Country: None (occurrence: None)
  Receive Date: 20101227
  Receipt Date: 20101227
  Transmission Date: 20110411
  Serious: Yes (Hospitalization, Other)
  Sender: FDA-Public Use
  Company Number: US-ABBOTT-10P-163-0691489-00

PATIENT
  Sex: Female
  Weight: 59.928 kg

DRUGS (5)
  1. SYNTHROID [Suspect]
     Indication: BASEDOW'S DISEASE
     Dates: start: 19950101
  2. MICARDIS [Suspect]
     Indication: PRODUCT USED FOR UNKNOWN INDICATION
     Dates: start: 20070101, end: 20100101
  3. CALCIUM ACETATE [Suspect]
     Indication: BLOOD PHOSPHORUS INCREASED
     Dates: start: 20100801
  4. AMLODIPINE [Concomitant]
     Indication: PRODUCT USED FOR UNKNOWN INDICATION
  5. FOSINOPRIL SODIUM [Concomitant]
     Indication: PRODUCT USED FOR UNKNOWN INDICATION

REACTIONS (9)
  - ABDOMINAL PAIN [None]
  - BLOOD PHOSPHORUS INCREASED [None]
  - BLOOD URINE [None]
  - FULL BLOOD COUNT DECREASED [None]
  - MENIERE'S DISEASE [None]
  - PAIN [None]
  - RENAL ATROPHY [None]
  - RENAL FAILURE ACUTE [None]
  - SOMNOLENCE [None]
